FAERS Safety Report 16344299 (Version 2)
Quarter: 2019Q2

REPORT INFORMATION
  Report Type: Spontaneous
  Country: US (occurrence: US)
  Receive Date: 20190522
  Receipt Date: 20190531
  Transmission Date: 20190711
  Serious: Yes (Hospitalization)
  Sender: FDA-Public Use
  Company Number: US-OTSUKA-2019_019905

PATIENT
  Sex: Male

DRUGS (1)
  1. NUEDEXTA [Suspect]
     Active Substance: DEXTROMETHORPHAN HYDROBROMIDE\QUINIDINE SULFATE
     Indication: TREMOR
     Dosage: 1 DF, QD
     Route: 065
     Dates: start: 2017, end: 2017

REACTIONS (4)
  - Abnormal behaviour [Recovered/Resolved]
  - Paranoia [Not Recovered/Not Resolved]
  - Product use in unapproved indication [Unknown]
  - Hallucination [Not Recovered/Not Resolved]

NARRATIVE: CASE EVENT DATE: 2017
